FAERS Safety Report 12588689 (Version 1)
Quarter: 2016Q3

REPORT INFORMATION
  Report Type: Spontaneous
  Country: GB (occurrence: GB)
  Receive Date: 20160725
  Receipt Date: 20160725
  Transmission Date: 20161109
  Serious: Yes (Hospitalization)
  Sender: FDA-Public Use
  Company Number: GB-009507513-1603GBR011531

PATIENT
  Age: 84 Year
  Sex: Male

DRUGS (2)
  1. CELECOXIB. [Suspect]
     Active Substance: CELECOXIB
     Indication: BLADDER CANCER
     Dosage: UNK
     Dates: start: 20090407
  2. BCG LIVE [Suspect]
     Active Substance: BACILLUS CALMETTE-GUERIN SUBSTRAIN TICE LIVE ANTIGEN
     Indication: BLADDER CANCER
     Dosage: UNK

REACTIONS (2)
  - Orchitis noninfective [Recovered/Resolved with Sequelae]
  - Granuloma [Recovered/Resolved with Sequelae]

NARRATIVE: CASE EVENT DATE: 201004
